FAERS Safety Report 17710035 (Version 1)
Quarter: 2020Q2

REPORT INFORMATION
  Report Type: Spontaneous
  Country: CH (occurrence: CH)
  Receive Date: 20200427
  Receipt Date: 20200427
  Transmission Date: 20200714
  Serious: Yes (Hospitalization, Other)
  Sender: FDA-Public Use
  Company Number: CH-SA-2020SA103821

PATIENT
  Age: 51 Year
  Sex: Male

DRUGS (4)
  1. CLONAZEPAM. [Suspect]
     Active Substance: CLONAZEPAM
     Dosage: NOT KNOWN EXACT QUANTITY TAKEN, RIVOTRIL 0.5 MG 10 TABLETS FOUND IN AN EMPTY BOX
     Route: 048
     Dates: start: 20200304, end: 20200304
  2. IBUPROFEN. [Suspect]
     Active Substance: IBUPROFEN
     Dosage: NOT KNOWN EXACT QUANTITY TAKEN, FOUND EMPTY BOX OF BRUFEN 600 MG 6 TABLETS
     Route: 048
     Dates: start: 20200304, end: 20200304
  3. STILNOX [Suspect]
     Active Substance: ZOLPIDEM TARTRATE
     Dosage: NOT KNOWN EXACT QUANTITY TAKEN, FOUND EMPTY BOX OF STILNOX 10 MG 10 TABLETS
     Route: 048
     Dates: start: 20200304, end: 20200304
  4. VASCORD HCT [Suspect]
     Active Substance: AMLODIPINE BESYLATE\HYDROCHLOROTHIAZIDE\OLMESARTAN MEDOXOMIL
     Indication: HYPERTENSION
     Dosage: UNKNOWN EXACT QUANTITY ASSUMED, FOUND EMPTY BOX OF VASCORD HCT 40/10 / 12.5 MG 43 TABLET
     Route: 048
     Dates: start: 20200304, end: 20200304

REACTIONS (6)
  - Somnolence [Recovered/Resolved]
  - Suicide attempt [Recovered/Resolved]
  - Disorientation [Recovered/Resolved]
  - Loss of consciousness [Recovered/Resolved]
  - Intentional overdose [Unknown]
  - Hypotension [Recovered/Resolved]

NARRATIVE: CASE EVENT DATE: 20200304
